FAERS Safety Report 9280691 (Version 1)
Quarter: 2013Q2

REPORT INFORMATION
  Report Type: Spontaneous
  Country: US (occurrence: None)
  Receive Date: 20130502
  Receipt Date: 20130502
  Transmission Date: 20140414
  Serious: Yes (Other)
  Sender: FDA-Public Use
  Company Number: 001519405A

PATIENT
  Age: 21 Year
  Sex: Female

DRUGS (3)
  1. PROACTIV CLEANSER [Suspect]
     Indication: ACNE
     Dosage: ONCE DAILY DERMAL?
     Dates: start: 20130328
  2. PROACTIV CLARIFYING DAY LOTION [Suspect]
     Indication: ACNE
     Dosage: ONCE DAILY DERMAL?
     Dates: start: 20130328
  3. ZYRTEC [Concomitant]

REACTIONS (5)
  - Pyrexia [None]
  - Lip swelling [None]
  - Urticaria [None]
  - Swelling face [None]
  - Throat tightness [None]
